FAERS Safety Report 8311544-4 (Version None)
Quarter: 2012Q1

REPORT INFORMATION
  Report Type: 
  Country: None (occurrence: None)
  Receive Date: 20120315
  Receipt Date: 20110218
  Transmission Date: 20120608
  Serious: Yes (Other)
  Sender: FDA-Public Use
  Company Number: PHHY2011US12525

PATIENT
  Age: 60 Year
  Sex: Female
  Weight: 84.4 kg

DRUGS (2)
  1. GILENYA [Suspect]
     Indication: MULTIPLE SCLEROSIS
     Dosage: 0.5 MG, QD, ORAL
     Route: 048
     Dates: start: 20101223
  2. WELLBUTRIN XL [Concomitant]

REACTIONS (3)
  - VISION BLURRED [None]
  - MALAISE [None]
  - PNEUMONIA [None]
